FAERS Safety Report 17255103 (Version 4)
Quarter: 2020Q2

REPORT INFORMATION
  Report Type: Spontaneous
  Country: IT (occurrence: IT)
  Receive Date: 20200109
  Receipt Date: 20200504
  Transmission Date: 20200713
  Serious: Yes (Hospitalization)
  Sender: FDA-Public Use
  Company Number: IT-BRISTOL-MYERS SQUIBB COMPANY-BMS-2020-001734

PATIENT
  Age: 85 Year
  Sex: Male

DRUGS (1)
  1. WARFARIN SODIUM. [Suspect]
     Active Substance: WARFARIN SODIUM
     Indication: PRODUCT USED FOR UNKNOWN INDICATION
     Dosage: 3 DOSAGE FORM, QD
     Route: 048
     Dates: start: 20191207, end: 20191214

REACTIONS (3)
  - International normalised ratio increased [Unknown]
  - Medication error [Unknown]
  - Blood creatine increased [Unknown]

NARRATIVE: CASE EVENT DATE: 20191214
